FAERS Safety Report 6945000-2 (Version None)
Quarter: 2010Q3

REPORT INFORMATION
  Report Type: 
  Country: None (occurrence: None)
  Receive Date: 20100827
  Receipt Date: 20100813
  Transmission Date: 20110219
  Serious: Yes (Other)
  Sender: FDA-Public Use
  Company Number: PHHY2010US54156

PATIENT
  Age: 13 Year
  Sex: Male

DRUGS (1)
  1. LETROZOLE [Suspect]
     Dosage: 2.5 MG PER DAY

REACTIONS (2)
  - HYPERBILIRUBINAEMIA [None]
  - POLYCYTHAEMIA [None]
